FAERS Safety Report 7092768-3 (Version None)
Quarter: 2010Q4

REPORT INFORMATION
  Report Type: 
  Country: None (occurrence: None)
  Receive Date: 20101109
  Receipt Date: 20101109
  Transmission Date: 20110411
  Serious: No
  Sender: FDA-Public Use
  Company Number: None

PATIENT
  Sex: Female
  Weight: 68.9467 kg

DRUGS (1)
  1. CEPHALEXIN [Suspect]
     Indication: TOOTH EXTRACTION
     Dosage: 1 PILL 4XD TOOK 10 PILLS
     Dates: start: 20101019, end: 20101021

REACTIONS (3)
  - CHEST DISCOMFORT [None]
  - DRUG EFFECT DECREASED [None]
  - DYSPNOEA [None]
